FAERS Safety Report 5032989-4 (Version None)
Quarter: 2006Q2

REPORT INFORMATION
  Report Type: 
  Country: None (occurrence: None)
  Receive Date: 20060622
  Receipt Date: 20060620
  Transmission Date: 20061013
  Serious: Yes (Hospitalization)
  Sender: FDA-Public Use
  Company Number: US-GLAXOSMITHKLINE-A0609684A

PATIENT
  Age: 53 Year
  Sex: Female

DRUGS (5)
  1. CITRUCEL REGULAR SUSPENSION [Suspect]
     Indication: DIVERTICULITIS
     Route: 048
     Dates: start: 20010101
  2. ATENOLOL [Concomitant]
  3. ACIPHEX [Concomitant]
  4. MOBIC [Concomitant]
  5. LISINOPRIL [Concomitant]

REACTIONS (3)
  - ABDOMINAL PAIN [None]
  - DIVERTICULITIS [None]
  - GASTROINTESTINAL INFECTION [None]
